FAERS Safety Report 22683246 (Version 3)
Quarter: 2025Q3

REPORT INFORMATION
  Report Type: Spontaneous
  Country: CA (occurrence: CA)
  Receive Date: 20230707
  Receipt Date: 20250808
  Transmission Date: 20251021
  Serious: Yes (Other)
  Sender: PFIZER
  Company Number: CA-PFIZER INC-202300240511

PATIENT
  Age: 76 Year
  Sex: Male

DRUGS (4)
  1. VYNDAQEL [Suspect]
     Active Substance: TAFAMIDIS MEGLUMINE
     Indication: Cardiac amyloidosis
     Dosage: 80 MG, 1X/DAY
     Route: 048
     Dates: start: 20220117
  2. ATORVASTATIN [Concomitant]
     Active Substance: ATORVASTATIN
  3. ENTRESTO [Concomitant]
     Active Substance: SACUBITRIL\VALSARTAN
  4. METOPROLOL [Concomitant]
     Active Substance: METOPROLOL

REACTIONS (22)
  - Leg amputation [Unknown]
  - Angioplasty [Unknown]
  - Cardiac failure chronic [Not Recovered/Not Resolved]
  - Myocardial infarction [Not Recovered/Not Resolved]
  - Atrial fibrillation [Not Recovered/Not Resolved]
  - Ventricular extrasystoles [Not Recovered/Not Resolved]
  - Mitral valve incompetence [Not Recovered/Not Resolved]
  - Tricuspid valve incompetence [Not Recovered/Not Resolved]
  - Ventricular hypokinesia [Not Recovered/Not Resolved]
  - Chordae tendinae rupture [Unknown]
  - Mass [Unknown]
  - Right ventricular dysfunction [Unknown]
  - Atrial enlargement [Not Recovered/Not Resolved]
  - Aortic dilatation [Not Recovered/Not Resolved]
  - Venous pressure increased [Not Recovered/Not Resolved]
  - Ejection fraction decreased [Not Recovered/Not Resolved]
  - Left ventricular hypertrophy [Not Recovered/Not Resolved]
  - Right ventricular hypertrophy [Not Recovered/Not Resolved]
  - Electrocardiogram abnormal [Not Recovered/Not Resolved]
  - Inferior vena cava dilatation [Recovered/Resolved]
  - Loss of personal independence in daily activities [Not Recovered/Not Resolved]
  - Aortic valve thickening [Unknown]

NARRATIVE: CASE EVENT DATE: 20230101
